FAERS Safety Report 12137711 (Version 1)
Quarter: 2016Q1

REPORT INFORMATION
  Report Type: Spontaneous
  Country: US (occurrence: US)
  Receive Date: 20160302
  Receipt Date: 20160302
  Transmission Date: 20160526
  Serious: Yes (Other)
  Sender: FDA-Public Use
  Company Number: US-SHIRE-US201602357

PATIENT
  Sex: Male
  Weight: 90.7 kg

DRUGS (1)
  1. LIALDA [Suspect]
     Active Substance: MESALAMINE
     Indication: COLITIS ULCERATIVE
     Dosage: 4.8 G (4 X 1.2 G TABLETS), UNKNOWN (A DAY)
     Route: 048

REACTIONS (1)
  - Colitis ulcerative [Unknown]
